FAERS Safety Report 19401113 (Version 1)
Quarter: 2021Q2

REPORT INFORMATION
  Report Type: Spontaneous
  Country: PL (occurrence: PL)
  Receive Date: 20210611
  Receipt Date: 20210611
  Transmission Date: 20210717
  Serious: Yes (Life-Threatening, Hospitalization)
  Sender: FDA-Public Use
  Company Number: PL-AUROBINDO-AUR-APL-2021-023813

PATIENT
  Sex: Male

DRUGS (1)
  1. MELPHALAN INJECTION [Suspect]
     Active Substance: MELPHALAN
     Indication: PLASMA CELL MYELOMA
     Dosage: 400 MILLIGRAM
     Route: 042
     Dates: start: 20160511, end: 20160511

REACTIONS (1)
  - Bone marrow disorder [Recovering/Resolving]

NARRATIVE: CASE EVENT DATE: 20160531
